FAERS Safety Report 7573935-9 (Version None)
Quarter: 2011Q2

REPORT INFORMATION
  Report Type: 
  Country: None (occurrence: None)
  Receive Date: 20110627
  Receipt Date: 20110624
  Transmission Date: 20111010
  Serious: No
  Sender: FDA-Public Use
  Company Number: US-PFIZER INC-2011141304

PATIENT
  Age: 39 Year
  Sex: Female
  Weight: 50 kg

DRUGS (4)
  1. PREDNISONE [Concomitant]
     Indication: PAIN
     Dosage: UNK
     Route: 061
  2. LYRICA [Suspect]
     Dosage: UNK
     Route: 048
     Dates: start: 20110624
  3. CLONAZEPAM [Concomitant]
     Indication: STRESS
     Dosage: UNK
     Route: 048
  4. PREDNISONE [Concomitant]
     Dosage: UNK
     Route: 048

REACTIONS (2)
  - OEDEMA PERIPHERAL [None]
  - GASTRIC DISORDER [None]
